FAERS Safety Report 14582693 (Version 3)
Quarter: 2018Q2

REPORT INFORMATION
  Report Type: Spontaneous
  Country: RO (occurrence: RO)
  Receive Date: 20180228
  Receipt Date: 20180419
  Transmission Date: 20180711
  Serious: Yes (Life-Threatening, Other)
  Sender: FDA-Public Use
  Company Number: RO-BAYER-2018-035002

PATIENT
  Sex: Female
  Weight: 2.43 kg

DRUGS (2)
  1. ASPIRIN. [Suspect]
     Active Substance: ASPIRIN
     Indication: PRODUCT USED FOR UNKNOWN INDICATION
     Dosage: 75 MG, UNK
  2. ENOXAPARIN [Suspect]
     Active Substance: ENOXAPARIN
     Indication: PRODUCT USED FOR UNKNOWN INDICATION
     Dosage: UNK

REACTIONS (5)
  - Developmental glaucoma [Unknown]
  - Foetal exposure during pregnancy [Unknown]
  - Anterior chamber cleavage syndrome [Unknown]
  - Congenital central nervous system anomaly [Unknown]
  - Coarctation of the aorta [Unknown]
